FAERS Safety Report 9247850 (Version 1)
Quarter: 2013Q2

REPORT INFORMATION
  Report Type: Spontaneous
  Country: US (occurrence: US)
  Receive Date: 20130423
  Receipt Date: 20130423
  Transmission Date: 20140414
  Serious: No
  Sender: FDA-Public Use
  Company Number: US-B.I. PHARMACEUTICALS,INC./RIDGEFIELD-2013-BI-10023BP

PATIENT
  Age: 70 Year
  Sex: Male
  Weight: 98 kg

DRUGS (2)
  1. SPIRIVA [Suspect]
     Indication: ASTHMA
     Dosage: 18 MCG
     Route: 055
     Dates: start: 20130410
  2. FLOVENT [Concomitant]
     Indication: ASTHMA
     Route: 055
     Dates: start: 2010

REACTIONS (1)
  - Heart rate increased [Not Recovered/Not Resolved]
